FAERS Safety Report 10560237 (Version 1)
Quarter: 2014Q4

REPORT INFORMATION
  Report Type: Spontaneous
  Country: FR (occurrence: None)
  Receive Date: 20141030
  Receipt Date: 20141030
  Transmission Date: 20150529
  Serious: Yes (Other)
  Sender: FDA-Public Use
  Company Number: FRA-SPN-2011006

PATIENT
  Age: 28 Year
  Sex: Male

DRUGS (6)
  1. LIORESAL -BACLOFEN [Concomitant]
  2. FLUDEX -INDAPAMIDE [Concomitant]
  3. DIFFU K -POTASSIUM CHLORIDE [Concomitant]
  4. FOLIC ACID. [Concomitant]
     Active Substance: FOLIC ACID
  5. CYSTADANE [Suspect]
     Active Substance: BETAINE
     Indication: HOMOCYSTINURIA
     Dosage: EVERY DAY
     Route: 048
     Dates: start: 20060519
  6. TRLETEC -RAMIPRIL [Concomitant]

REACTIONS (5)
  - Inappropriate schedule of drug administration [None]
  - Hypertriglyceridaemia [None]
  - Hepatitis [None]
  - Hepatocellular injury [None]
  - Hypokalaemia [None]

NARRATIVE: CASE EVENT DATE: 20110510
